FAERS Safety Report 6685416-5 (Version None)
Quarter: 2010Q2

REPORT INFORMATION
  Report Type: 
  Country: None (occurrence: None)
  Receive Date: 20100418
  Receipt Date: 20100317
  Transmission Date: 20101027
  Serious: No
  Sender: FDA-Public Use
  Company Number: US-BAYER-201013304BCC

PATIENT
  Age: 83 Year
  Sex: Male
  Weight: 95 kg

DRUGS (2)
  1. ALEVE (CAPLET) [Suspect]
     Indication: ARTHRALGIA
     Dosage: UNIT DOSE: 220 MG
     Route: 048
  2. LISINOPRIL [Concomitant]

REACTIONS (1)
  - ABDOMINAL PAIN UPPER [None]
